FAERS Safety Report 15964988 (Version 6)
Quarter: 2020Q2

REPORT INFORMATION
  Report Type: Report from Study
  Country: DE (occurrence: DE)
  Receive Date: 20190215
  Receipt Date: 20200429
  Transmission Date: 20200713
  Serious: Yes (Death, Disabling, Congenital Anomaly, Other)
  Sender: FDA-Public Use
  Company Number: DE-ACCORD-107431

PATIENT

DRUGS (23)
  1. RAMIPRIL. [Suspect]
     Active Substance: RAMIPRIL
     Indication: PRODUCT USED FOR UNKNOWN INDICATION
     Dosage: 20 MG PER DAY, EXPOSURE DURATION: 0-13+6 WEEKS
     Route: 064
     Dates: start: 20111214, end: 20120320
  2. ASPIRIN. [Suspect]
     Active Substance: ASPIRIN
     Route: 064
  3. TORASEMIDE [Suspect]
     Active Substance: TORSEMIDE
     Dosage: FROM GESTATIONAL WEEK 0-14
     Route: 064
     Dates: start: 20111214, end: 20120320
  4. CLEXANE [Suspect]
     Active Substance: ENOXAPARIN SODIUM
     Indication: PRODUCT USED FOR UNKNOWN INDICATION
     Dosage: 200 MG/D (2X100)
     Route: 064
     Dates: start: 20111214, end: 20120320
  5. ENOXAPARIN [Concomitant]
     Active Substance: ENOXAPARIN
     Dosage: UNK UNK, UNKNOWN FREQ. (0-14 GW), ALSO RECEIVED AS CONCOMITANT.
     Route: 064
  6. TACROLIMUS. [Suspect]
     Active Substance: TACROLIMUS
     Dosage: FROM GESTATIONAL WEEK 0-14
     Route: 064
     Dates: start: 20111214, end: 20120320
  7. ALISKIREN [Suspect]
     Active Substance: ALISKIREN
     Dosage: 300 MG/D, 0-4.6 GESTATIONAL WEEK
     Route: 064
     Dates: start: 20111214, end: 20120117
  8. SALBUTAMOL [Suspect]
     Active Substance: ALBUTEROL
     Dosage: FROM GESTATIONAL WEEK 0-14
     Route: 064
  9. RIVAROXABAN [Suspect]
     Active Substance: RIVAROXABAN
     Route: 064
  10. NOVAMINSULFON [Suspect]
     Active Substance: METAMIZOLE
     Dosage: UNK, TRIMESTER: FIRST, PROBABLY ONLY IN HOSPITAL IN WEEK 5
     Route: 064
  11. PREDNISOLONE. [Suspect]
     Active Substance: PREDNISOLONE
     Dosage: FROM GESTATIONAL WEEK 0-14
     Route: 064
     Dates: start: 20111214, end: 20120320
  12. CYCLOPHOSPHAMIDE/CYCLOPHOSPHAMIDE MONOHYDRATE [Concomitant]
     Active Substance: CYCLOPHOSPHAMIDE
     Dosage: 3000 MG CUMULATIVE, PRECONCEPTIONAL
     Route: 064
     Dates: start: 201104, end: 201108
  13. PANTOPRAZOLE [Suspect]
     Active Substance: PANTOPRAZOLE
     Dosage: 40 MG/D, 0-13.6 GESTATIONAL WEEK
     Route: 064
     Dates: start: 20111214, end: 20120320
  14. DALTEPARIN [Suspect]
     Active Substance: DALTEPARIN
     Dosage: UNK
     Route: 064
  15. HYDROXYCHLOROQUINE [Suspect]
     Active Substance: HYDROXYCHLOROQUINE
     Dosage: FROM GESTATIONAL WEEK 0-14
     Route: 064
     Dates: start: 20111214, end: 20120320
  16. RITUXIMAB. [Suspect]
     Active Substance: RITUXIMAB
     Indication: PRODUCT USED FOR UNKNOWN INDICATION
     Dosage: UNK, LAST TIME IN DECEMBER 2011: PRE OR PERICONCEPTIONAL
     Route: 064
     Dates: end: 201112
  17. SIMVASTATIN. [Suspect]
     Active Substance: SIMVASTATIN
     Dosage: FROM GESTATIONAL WEEK 0-14
     Route: 064
     Dates: start: 20111214, end: 20120320
  18. NICOTINE. [Suspect]
     Active Substance: NICOTINE
     Dosage: FROM GESTATIONAL WEEK 0-14
     Route: 064
  19. XARELTO [Suspect]
     Active Substance: RIVAROXABAN
     Dosage: FROM GESTATIONAL WEEK 0-5
     Route: 064
  20. METAMIZOLE SODIUM [Suspect]
     Active Substance: METAMIZOLE SODIUM
     Dosage: FROM GESTATIONAL WEEK 0-14
     Route: 064
  21. EZETIMIBE. [Suspect]
     Active Substance: EZETIMIBE
     Dosage: ALSO RECEIVED AS SUSPECT, FROM GESTATIONAL WEEK 0-14
     Route: 064
  22. CYTOTEC [Concomitant]
     Active Substance: MISOPROSTOL
     Indication: ABORTION INDUCED
     Dosage: UNK, 13.6 GESTATIONAL WEEK
     Route: 064
     Dates: start: 20120320, end: 20120320
  23. MIFEGYNE [Concomitant]
     Active Substance: MIFEPRISTONE
     Indication: ABORTION INDUCED
     Dosage: UNK, 13.6 GESTATIONAL WEEK
     Route: 064
     Dates: start: 20120320, end: 20120320

REACTIONS (8)
  - Premature baby [Unknown]
  - Ventricular septal defect [Fatal]
  - Cardiac septal defect [Fatal]
  - Heart disease congenital [Fatal]
  - Truncus arteriosus persistent [Fatal]
  - Low birth weight baby [Unknown]
  - Congenital cardiovascular anomaly [Fatal]
  - Foetal exposure during pregnancy [Fatal]
